FAERS Safety Report 7571545-0 (Version None)
Quarter: 2011Q2

REPORT INFORMATION
  Report Type: 
  Country: None (occurrence: None)
  Receive Date: 20110624
  Receipt Date: 20110613
  Transmission Date: 20111010
  Serious: Yes (Hospitalization)
  Sender: FDA-Public Use
  Company Number: CA-JNJFOC-20110607107

PATIENT
  Sex: Male
  Weight: 136.5 kg

DRUGS (4)
  1. REMICADE [Suspect]
     Indication: CROHN'S DISEASE
     Route: 042
  2. REMICADE [Suspect]
     Route: 042
     Dates: start: 20110407
  3. FOLIC ACID [Concomitant]
  4. IMURAN [Concomitant]

REACTIONS (5)
  - GENITAL LESION [None]
  - BLOOD URINE PRESENT [None]
  - WHITE BLOOD CELL COUNT DECREASED [None]
  - BODY TEMPERATURE INCREASED [None]
  - DYSURIA [None]
